FAERS Safety Report 18240015 (Version 1)
Quarter: 2020Q3

REPORT INFORMATION
  Report Type: Report from Study
  Country: None (occurrence: US)
  Receive Date: 20200908
  Receipt Date: 20200908
  Transmission Date: 20201103
  Serious: Yes (Hospitalization, Other)
  Sender: FDA-Public Use
  Company Number: US-ABBVIE-19K-163-3202896-00

PATIENT
  Age: 83 Year
  Sex: Female
  Weight: 57.2 kg

DRUGS (3)
  1. LOVASTATIN. [Concomitant]
     Active Substance: LOVASTATIN
     Indication: PRODUCT USED FOR UNKNOWN INDICATION
  2. HUMIRA [Suspect]
     Active Substance: ADALIMUMAB
     Indication: RHEUMATOID ARTHRITIS
     Dosage: ABOUT 4 TO 5 YEARS AGO
     Route: 058
     Dates: start: 2015, end: 202003
  3. HUMIRA [Suspect]
     Active Substance: ADALIMUMAB
     Route: 058
     Dates: start: 202008

REACTIONS (11)
  - Clostridium difficile infection [Recovered/Resolved]
  - Heart rate increased [Recovering/Resolving]
  - Infection [Unknown]
  - Diarrhoea [Recovered/Resolved]
  - International normalised ratio increased [Recovering/Resolving]
  - Gastrointestinal infection [Recovered/Resolved]
  - Atrial fibrillation [Recovering/Resolving]
  - Peripheral swelling [Not Recovered/Not Resolved]
  - Immunodeficiency [Not Recovered/Not Resolved]
  - Sepsis [Recovered/Resolved]
  - Hospitalisation [Unknown]

NARRATIVE: CASE EVENT DATE: 2020
